FAERS Safety Report 6752602-5 (Version None)
Quarter: 2010Q2

REPORT INFORMATION
  Report Type: 
  Country: None (occurrence: None)
  Receive Date: 20100601
  Receipt Date: 20100601
  Transmission Date: 20101027
  Serious: No
  Sender: FDA-Public Use
  Company Number: None

PATIENT
  Age: 60 Year
  Sex: Female
  Weight: 54.4316 kg

DRUGS (2)
  1. CYMBALTA [Suspect]
     Indication: BACK PAIN
     Dates: start: 20100406, end: 20100427
  2. CYMBALTA [Suspect]
     Indication: DEPRESSION
     Dates: start: 20100406, end: 20100427

REACTIONS (2)
  - HEADACHE [None]
  - VOMITING [None]
